FAERS Safety Report 5626364-9 (Version None)
Quarter: 2008Q1

REPORT INFORMATION
  Report Type: 
  Country: None (occurrence: None)
  Receive Date: 20080211
  Receipt Date: 20080128
  Transmission Date: 20080703
  Serious: Yes (Other)
  Sender: FDA-Public Use
  Company Number: 2008S1001636

PATIENT
  Age: 70 Year
  Sex: Female

DRUGS (10)
  1. FLUVOXAMINE MALEATE [Suspect]
     Indication: DEPRESSION
     Dosage: 150 MG; ORAL; DAILY
     Route: 048
  2. TIZANIDINE HCL [Suspect]
     Indication: PAIN IN EXTREMITY
     Dosage: 3 MG; DAILY
  3. ZOPICLONE [Concomitant]
  4. FLUNITRAZEPAM (FLUNITRAZEPAM) [Concomitant]
  5. BENIDIPINE (BENIDIPINE) [Concomitant]
  6. CANDESARTAN CILEXETIL [Concomitant]
  7. TICLOPIDINE HYDROCHLORIDE [Concomitant]
  8. FAMOTIDINE [Concomitant]
  9. BEZAFIBRATE (BEZAFIBRATE) [Concomitant]
  10. CARBAMAZEPINE [Concomitant]

REACTIONS (5)
  - BODY TEMPERATURE DECREASED [None]
  - DRUG INTERACTION [None]
  - DRY MOUTH [None]
  - HEART RATE DECREASED [None]
  - URINE OUTPUT DECREASED [None]
